FAERS Safety Report 18013957 (Version 1)
Quarter: 2020Q3

REPORT INFORMATION
  Report Type: Spontaneous
  Country: FR (occurrence: FR)
  Receive Date: 20200713
  Receipt Date: 20200713
  Transmission Date: 20201103
  Serious: Yes (Death)
  Sender: FDA-Public Use
  Company Number: FR-JNJFOC-20200701779

PATIENT
  Sex: Male
  Weight: 55 kg

DRUGS (2)
  1. LEPTICUR [Suspect]
     Active Substance: TROPATEPINE HYDROCHLORIDE
     Indication: SCHIZOPHRENIA
     Dosage: THERAPY END DATE: /MAY/2020
     Route: 048
     Dates: start: 2017
  2. HALDOL DECANOAS [Suspect]
     Active Substance: HALOPERIDOL DECANOATE
     Indication: SCHIZOPHRENIA
     Dosage: THERAPY END DATE: /MAY/2020
     Route: 058
     Dates: start: 2017

REACTIONS (15)
  - Off label use [Unknown]
  - Incorrect route of product administration [Unknown]
  - Hypotension [Not Recovered/Not Resolved]
  - Photophobia [Not Recovered/Not Resolved]
  - Optic nerve disorder [Not Recovered/Not Resolved]
  - Weight decreased [Not Recovered/Not Resolved]
  - Dyspnoea exertional [Not Recovered/Not Resolved]
  - Death [Fatal]
  - Abdominal distension [Not Recovered/Not Resolved]
  - Salivary hypersecretion [Not Recovered/Not Resolved]
  - Loss of libido [Not Recovered/Not Resolved]
  - Vomiting [Not Recovered/Not Resolved]
  - Aerophagia [Not Recovered/Not Resolved]
  - Dyspnoea [Not Recovered/Not Resolved]
  - Tremor [Not Recovered/Not Resolved]

NARRATIVE: CASE EVENT DATE: 2017
